FAERS Safety Report 7292256-5 (Version None)
Quarter: 2010Q4

REPORT INFORMATION
  Report Type: 
  Country: None (occurrence: None)
  Receive Date: 20101223
  Receipt Date: 20100208
  Transmission Date: 20110411
  Serious: Yes (Other)
  Sender: FDA-Public Use
  Company Number: FEI2009-2279

PATIENT
  Age: 32 Year
  Sex: Female
  Weight: 61.6892 kg

DRUGS (3)
  1. PARAGARD T 380A [Suspect]
     Indication: CONTRACEPTION
     Dosage: I.U.
     Dates: start: 20080110, end: 20091103
  2. ALBUTEROL [Concomitant]
  3. ADVAIR [Concomitant]

REACTIONS (3)
  - ABDOMINAL PAIN [None]
  - ABORTION SPONTANEOUS [None]
  - VAGINAL HAEMORRHAGE [None]
